FAERS Safety Report 4867169-6 (Version None)
Quarter: 2005Q4

REPORT INFORMATION
  Report Type: 
  Country: None (occurrence: None)
  Receive Date: 20051222
  Receipt Date: 20051214
  Transmission Date: 20060501
  Serious: Yes (Death, Hospitalization)
  Sender: FDA-Public Use
  Company Number: 2005169224

PATIENT
  Age: 49 Year
  Sex: Male

DRUGS (10)
  1. GEODON [Suspect]
     Indication: ILL-DEFINED DISORDER
     Dosage: 120 MG (1 IN 1 D), UNKNOWN
     Dates: start: 20050819, end: 20050901
  2. CLOZAPINE [Suspect]
     Indication: SCHIZOPHRENIA
     Dosage: 600 MG, ORAL
     Route: 048
     Dates: start: 19990201, end: 20050819
  3. MACROGOL (MACROGOL) [Concomitant]
  4. DOCUSATE (DOCUSATE) [Concomitant]
  5. HALDOL [Concomitant]
  6. TRIHEXYPHENIDYL HCL [Concomitant]
  7. GEMFIBROZIL [Concomitant]
  8. METOCLOPRAMIDE [Concomitant]
  9. PANTOPRAZOLE SODIUM [Concomitant]
  10. MAGNESIUM OXIDE (MAGNESIUM OXIDE) [Concomitant]

REACTIONS (3)
  - DIZZINESS [None]
  - NAUSEA [None]
  - VOMITING [None]
